FAERS Safety Report 8850224 (Version 1)
Quarter: 2012Q4

REPORT INFORMATION
  Report Type: 
  Country: KP (occurrence: KP)
  Receive Date: 20121019
  Receipt Date: 20121019
  Transmission Date: 20130627
  Serious: Yes (Other)
  Sender: FDA-Public Use
  Company Number: KP-SPECTRUM PHARMACEUTICALS, INC.-12-F-KP-00145

PATIENT
  Age: 43 Year
  Sex: Female

DRUGS (4)
  1. FLUOROURACIL [Suspect]
     Indication: CERVIX CARCINOMA
     Dosage: 1700 mg, qd, for five days, on seventh cycle
     Route: 042
  2. CISPLATIN [Suspect]
     Indication: CERVIX CARCINOMA
     Dosage: 100 mg, single, on seventh cycle
     Route: 042
  3. PACLITAXEL [Suspect]
     Indication: CERVIX CARCINOMA
     Dosage: UNK, received six cycles
     Route: 065
  4. CARBOPLATIN [Suspect]
     Indication: CERVIX CARCINOMA
     Dosage: UNK, received six cycles
     Route: 065

REACTIONS (3)
  - Leukoencephalopathy [Recovered/Resolved]
  - Tremor [Recovered/Resolved]
  - Dysarthria [Recovered/Resolved]
